FAERS Safety Report 6738200-8 (Version None)
Quarter: 2010Q2

REPORT INFORMATION
  Report Type: 
  Country: None (occurrence: None)
  Receive Date: 20100524
  Receipt Date: 20100514
  Transmission Date: 20101027
  Serious: Yes (Hospitalization)
  Sender: FDA-Public Use
  Company Number: A0731192A

PATIENT
  Age: 55 Year
  Sex: Female
  Weight: 90.9 kg

DRUGS (3)
  1. AVANDIA [Suspect]
     Indication: DIABETES MELLITUS
     Dosage: 4MG TWICE PER DAY
     Route: 048
     Dates: start: 19990101, end: 20030101
  2. AVANDAMET [Suspect]
     Route: 048
     Dates: start: 20030101, end: 20040101
  3. METFORMIN [Concomitant]

REACTIONS (5)
  - ACUTE CORONARY SYNDROME [None]
  - ACUTE MYOCARDIAL INFARCTION [None]
  - ATRIOVENTRICULAR BLOCK [None]
  - MITRAL VALVE INCOMPETENCE [None]
  - UPPER LIMB FRACTURE [None]
